FAERS Safety Report 4497917-9 (Version None)
Quarter: 2004Q4

REPORT INFORMATION
  Report Type: 
  Country: None (occurrence: None)
  Receive Date: 20041105
  Receipt Date: 20041026
  Transmission Date: 20050328
  Serious: Yes (Other)
  Sender: FDA-Public Use
  Company Number: 2004081281

PATIENT
  Age: 56 Year
  Sex: Male
  Weight: 81.1939 kg

DRUGS (4)
  1. VIAGRA [Suspect]
     Indication: ERECTILE DYSFUNCTION
     Dosage: 25 MG, AS NECESSARY, ORAL
     Route: 048
  2. TOLTERODINE TARTRATE [Suspect]
     Indication: URINARY INCONTINENCE
     Dosage: 4 MG (4 MG, 1 IN 1 D), ORAL
     Route: 048
  3. GABAPENTIN [Concomitant]
  4. VALPROATE SODIUM [Concomitant]

REACTIONS (5)
  - BLADDER DISORDER [None]
  - DRUG INEFFECTIVE [None]
  - PHARMACEUTICAL PRODUCT COMPLAINT [None]
  - TESTIS CANCER [None]
  - URINARY INCONTINENCE [None]
